FAERS Safety Report 24613787 (Version 2)
Quarter: 2024Q4

REPORT INFORMATION
  Report Type: Spontaneous
  Country: US (occurrence: US)
  Receive Date: 20241113
  Receipt Date: 20241211
  Transmission Date: 20250115
  Serious: No
  Sender: Haleon PLC
  Company Number: US-HALEON-2208575

PATIENT
  Sex: Female

DRUGS (1)
  1. ALLI [Suspect]
     Active Substance: ORLISTAT
     Indication: Weight control
     Dates: start: 20241110, end: 20241112

REACTIONS (3)
  - Drug ineffective [Unknown]
  - Product complaint [Unknown]
  - Product counterfeit [Unknown]
